FAERS Safety Report 13502853 (Version 1)
Quarter: 2017Q2

REPORT INFORMATION
  Report Type: Spontaneous
  Country: US (occurrence: US)
  Receive Date: 20170501
  Receipt Date: 20170501
  Transmission Date: 20170830
  Serious: Yes (Life-Threatening, Hospitalization, Other)
  Sender: FDA-Public Use
  Company Number: None

PATIENT
  Age: 72 Year
  Sex: Male
  Weight: 135.44 kg

DRUGS (1)
  1. PREDNISONE. [Suspect]
     Active Substance: PREDNISONE
     Indication: DIABETES MELLITUS
     Route: 048
     Dates: start: 20160623

REACTIONS (2)
  - Fall [None]
  - Diabetic ketoacidosis [None]

NARRATIVE: CASE EVENT DATE: 20170119
